FAERS Safety Report 15983743 (Version 1)
Quarter: 2019Q1

REPORT INFORMATION
  Report Type: Report from Study
  Country: US (occurrence: US)
  Receive Date: 20190220
  Receipt Date: 20190220
  Transmission Date: 20190418
  Serious: Yes (Hospitalization)
  Sender: FDA-Public Use
  Company Number: US-BIOGEN-2019BI00698290

PATIENT
  Sex: Female

DRUGS (1)
  1. AVONEX [Suspect]
     Active Substance: INTERFERON BETA-1A
     Indication: MULTIPLE SCLEROSIS
     Route: 030
     Dates: start: 20181015

REACTIONS (7)
  - Hepatic lesion [Unknown]
  - Muscular weakness [Unknown]
  - Hypotension [Unknown]
  - Fungal infection [Unknown]
  - Folliculitis [Unknown]
  - Liver function test abnormal [Unknown]
  - Confusional state [Unknown]
